FAERS Safety Report 6321593-3 (Version None)
Quarter: 2009Q3

REPORT INFORMATION
  Report Type: 
  Country: None (occurrence: None)
  Receive Date: 20090820
  Receipt Date: 20090820
  Transmission Date: 20100115
  Serious: No
  Sender: FDA-Public Use
  Company Number: None

PATIENT
  Sex: Female

DRUGS (1)
  1. THYROID TAB [Suspect]
     Dosage: CHEW 3 1/2 GRAIN DAILY PO
     Route: 048
     Dates: start: 20090501, end: 20090815

REACTIONS (5)
  - BALANCE DISORDER [None]
  - CROHN'S DISEASE [None]
  - FOOD CRAVING [None]
  - SLUGGISHNESS [None]
  - UNEVALUABLE EVENT [None]
